FAERS Safety Report 9919658 (Version 1)
Quarter: 2014Q1

REPORT INFORMATION
  Report Type: Spontaneous
  Country: FR (occurrence: FR)
  Receive Date: 20140224
  Receipt Date: 20140224
  Transmission Date: 20141002
  Serious: Yes (Hospitalization)
  Sender: FDA-Public Use
  Company Number: PHHY2014FR019977

PATIENT
  Age: 76 Year
  Sex: Male

DRUGS (3)
  1. EXJADE [Suspect]
     Indication: IRON OVERLOAD
     Dosage: UNK UKN, UNK
     Route: 048
     Dates: start: 20131126, end: 20131210
  2. ARACYTINE [Concomitant]
     Dosage: UNK UKN, UNK
     Dates: start: 20131126
  3. VOLASERTIB [Concomitant]
     Dosage: UNK UKN, UNK
     Dates: start: 20131126

REACTIONS (7)
  - Toxic skin eruption [Recovered/Resolved]
  - Dysphagia [Recovered/Resolved]
  - Stomatitis [Recovered/Resolved]
  - Stomatitis necrotising [Recovered/Resolved]
  - Oedema [Recovered/Resolved]
  - Urticaria [Recovered/Resolved]
  - Renal failure [Recovered/Resolved]
